FAERS Safety Report 16284722 (Version 2)
Quarter: 2019Q2

REPORT INFORMATION
  Report Type: Spontaneous
  Country: US (occurrence: US)
  Receive Date: 20190508
  Receipt Date: 20190516
  Transmission Date: 20190711
  Serious: Yes (Death)
  Sender: FDA-Public Use
  Company Number: US-BIOVITRUM-2019US0911

PATIENT
  Sex: Male

DRUGS (8)
  1. ACYCLOVIR. [Concomitant]
     Active Substance: ACYCLOVIR
  2. GAMIFANT [Suspect]
     Active Substance: EMAPALUMAB-LZSG
     Dosage: 5-6 MG/KG
     Route: 042
     Dates: start: 20190321
  3. GAMIFANT [Suspect]
     Active Substance: EMAPALUMAB-LZSG
     Route: 042
     Dates: start: 20190116, end: 20190321
  4. GAMIFANT [Suspect]
     Active Substance: EMAPALUMAB-LZSG
     Indication: FAMILIAL HAEMOPHAGOCYTIC LYMPHOHISTIOCYTOSIS
     Route: 042
     Dates: start: 20181227
  5. CLONIDINE. [Concomitant]
     Active Substance: CLONIDINE
  6. GAMIFANT [Suspect]
     Active Substance: EMAPALUMAB-LZSG
     Dosage: 3-6 MG/KG AROUND 2JAN2019
  7. MICAFUNGIN. [Concomitant]
     Active Substance: MICAFUNGIN SODIUM
  8. DEXAMETHASONE. [Concomitant]
     Active Substance: DEXAMETHASONE

REACTIONS (1)
  - Cardiac failure congestive [Fatal]
